FAERS Safety Report 10039734 (Version 1)
Quarter: 2014Q1

REPORT INFORMATION
  Report Type: Spontaneous
  Country: FR (occurrence: FR)
  Receive Date: 20140326
  Receipt Date: 20140326
  Transmission Date: 20141002
  Serious: Yes (Hospitalization)
  Sender: FDA-Public Use
  Company Number: FR-PFIZER INC-2014082724

PATIENT
  Age: 74 Year
  Sex: Male

DRUGS (2)
  1. TAHOR [Suspect]
     Indication: HYPERCHOLESTEROLAEMIA
     Dosage: 20 MG, DAILY
     Route: 048
     Dates: start: 2008, end: 201306
  2. CASODEX [Concomitant]
     Indication: PROSTATE CANCER

REACTIONS (1)
  - Interstitial lung disease [Recovering/Resolving]
